FAERS Safety Report 9473197 (Version 1)
Quarter: 2013Q3

REPORT INFORMATION
  Report Type: Spontaneous
  Country: US (occurrence: US)
  Receive Date: 20130823
  Receipt Date: 20130823
  Transmission Date: 20140515
  Serious: No
  Sender: FDA-Public Use
  Company Number: US-BRISTOL-MYERS SQUIBB COMPANY-18753756

PATIENT
  Age: 27 Year
  Sex: Male
  Weight: 74.84 kg

DRUGS (13)
  1. SPRYCEL (CML) TABS [Suspect]
     Indication: CHRONIC MYELOID LEUKAEMIA
     Route: 048
     Dates: start: 20110112
  2. LEXAPRO [Suspect]
  3. VITAMIN C [Concomitant]
  4. CONVALLARIA MAJALIS\CRATAEGUS LAEVIGATA LEAF\PROXYPHYLLINE [Concomitant]
  5. VITAMIN B [Concomitant]
  6. CALCIUM [Concomitant]
  7. MAGNESIUM [Concomitant]
  8. ZINC [Concomitant]
  9. CHLORELLA [Concomitant]
  10. ZINC [Concomitant]
  11. ZYRTEC [Concomitant]
  12. TYLENOL [Concomitant]
  13. SPIRULINA [Concomitant]

REACTIONS (2)
  - Dyspnoea [Unknown]
  - Fatigue [Unknown]
